FAERS Safety Report 9272495 (Version 1)
Quarter: 2013Q2

REPORT INFORMATION
  Report Type: Spontaneous
  Country: CA (occurrence: CA)
  Receive Date: 20130506
  Receipt Date: 20130506
  Transmission Date: 20140414
  Serious: Yes (Death)
  Sender: FDA-Public Use
  Company Number: CA-FRI-1000044906

PATIENT
  Age: 78 Year
  Sex: Female

DRUGS (3)
  1. CEFTAROLINE FOSAMIL [Suspect]
     Indication: STAPHYLOCOCCAL INFECTION
     Dosage: 800 MG
     Route: 042
     Dates: start: 20130419, end: 20130421
  2. LINEZOLID [Concomitant]
  3. DAPTOMYCIN [Concomitant]

REACTIONS (2)
  - Sepsis [Fatal]
  - Respiratory failure [Fatal]
